FAERS Safety Report 19501596 (Version 1)
Quarter: 2021Q3

REPORT INFORMATION
  Report Type: Spontaneous
  Country: ES (occurrence: ES)
  Receive Date: 20210707
  Receipt Date: 20210707
  Transmission Date: 20211014
  Serious: Yes (Hospitalization)
  Sender: FDA-Public Use
  Company Number: NVSC2021ES138922

PATIENT
  Age: 75 Year
  Sex: Male

DRUGS (2)
  1. METHOTREXATE. [Suspect]
     Active Substance: METHOTREXATE
     Indication: KERATOACANTHOMA
     Dosage: 15 MG (TWO INTRALESIONAL INJECTIONS OF 15 AND 25 MG)
     Route: 026
  2. METHOTREXATE. [Suspect]
     Active Substance: METHOTREXATE
     Dosage: 25 MG (TWO INTRALESIONAL INJECTIONS OF 15 AND 25 MG)
     Route: 026

REACTIONS (2)
  - Pancytopenia [Recovered/Resolved]
  - Product use in unapproved indication [Unknown]
